FAERS Safety Report 6965018-3 (Version None)
Quarter: 2010Q3

REPORT INFORMATION
  Report Type: 
  Country: None (occurrence: None)
  Receive Date: 20100903
  Receipt Date: 20100823
  Transmission Date: 20110219
  Serious: Yes (Hospitalization)
  Sender: FDA-Public Use
  Company Number: MX-SANOFI-AVENTIS-2010SA048149

PATIENT
  Age: 70 Year
  Sex: Male
  Weight: 176 kg

DRUGS (6)
  1. DRONEDARONE HCL [Suspect]
     Indication: ATRIAL FIBRILLATION
     Route: 048
     Dates: start: 20100728
  2. DIOVANE [Suspect]
     Route: 048
  3. NORVASC [Suspect]
     Route: 048
  4. DORIXINA [Suspect]
     Indication: PAIN MANAGEMENT
     Route: 048
     Dates: start: 20100723
  5. CIPROFLOXACIN [Suspect]
     Indication: URINARY TRACT INFECTION
     Route: 048
     Dates: start: 20100723
  6. PRILOSEC [Suspect]
     Indication: GASTRITIS
     Route: 048
     Dates: start: 20100723

REACTIONS (1)
  - RENAL FAILURE ACUTE [None]
